FAERS Safety Report 15362325 (Version 3)
Quarter: 2018Q4

REPORT INFORMATION
  Report Type: Spontaneous
  Country: US (occurrence: US)
  Receive Date: 20180907
  Receipt Date: 20181003
  Transmission Date: 20190204
  Serious: Yes (Other)
  Sender: FDA-Public Use
  Company Number: US-BEH-2018094622

PATIENT
  Sex: Female

DRUGS (1)
  1. HIZENTRA [Suspect]
     Active Substance: HUMAN IMMUNOGLOBULIN G
     Indication: HUMORAL IMMUNE DEFECT
     Dosage: 10 G/50 ML, QW
     Route: 058

REACTIONS (9)
  - Cough [Unknown]
  - Chest discomfort [Unknown]
  - Rash erythematous [Unknown]
  - Viral upper respiratory tract infection [Unknown]
  - Administration site reaction [Unknown]
  - Chest pain [Unknown]
  - Sputum discoloured [Unknown]
  - Pyrexia [Unknown]
  - Bronchitis chronic [Unknown]
